FAERS Safety Report 5017811-4 (Version None)
Quarter: 2006Q2

REPORT INFORMATION
  Report Type: 
  Country: None (occurrence: None)
  Receive Date: 20060530
  Receipt Date: 20060516
  Transmission Date: 20061013
  Serious: Yes (Death, Hospitalization)
  Sender: FDA-Public Use
  Company Number: 2005130982

PATIENT
  Age: 45 Year
  Sex: Male
  Weight: 95.2554 kg

DRUGS (1)
  1. CELEBREX [Suspect]
     Indication: BACK PAIN
     Dosage: 400 MG (200 MG, 2 IN 1 D)
     Dates: start: 20030728, end: 20040704

REACTIONS (3)
  - CORONARY ARTERY OCCLUSION [None]
  - EMBOLISM [None]
  - MYOCARDIAL INFARCTION [None]
